FAERS Safety Report 14127001 (Version 1)
Quarter: 2017Q4

REPORT INFORMATION
  Report Type: Spontaneous
  Country: JP (occurrence: JP)
  Receive Date: 20171026
  Receipt Date: 20171026
  Transmission Date: 20180321
  Serious: Yes (Death)
  Sender: FDA-Public Use
  Company Number: JP-ARIAD PHARMACEUTICALS, INC-2016JP007385

PATIENT
  Age: 34 Year
  Sex: Male

DRUGS (1)
  1. ICLUSIG [Suspect]
     Active Substance: PONATINIB
     Indication: CHRONIC MYELOID LEUKAEMIA TRANSFORMATION
     Dosage: 45 MG, DAILY DOSE
     Route: 048
     Dates: start: 20161101

REACTIONS (2)
  - Leukaemic infiltration extramedullary [Fatal]
  - Rash [Recovered/Resolved]

NARRATIVE: CASE EVENT DATE: 201611
